FAERS Safety Report 23877273 (Version 1)
Quarter: 2024Q2

REPORT INFORMATION
  Report Type: Spontaneous
  Country: US (occurrence: US)
  Receive Date: 20240521
  Receipt Date: 20240521
  Transmission Date: 20240716
  Serious: Yes (Hospitalization, Other)
  Sender: FDA-Public Use
  Company Number: US-STRIDES ARCOLAB LIMITED-2024SP005803

PATIENT
  Age: 48 Year
  Sex: Male

DRUGS (22)
  1. ETOPOSIDE [Suspect]
     Active Substance: ETOPOSIDE
     Indication: Lung neoplasm
     Dosage: UNK
     Route: 065
     Dates: start: 2017
  2. BACLOFEN [Suspect]
     Active Substance: BACLOFEN
     Indication: Stiff person syndrome
     Dosage: 5 MILLIGRAM, QD
     Route: 065
  3. BACLOFEN [Suspect]
     Active Substance: BACLOFEN
     Indication: Paraneoplastic syndrome
  4. CYCLOBENZAPRINE [Suspect]
     Active Substance: CYCLOBENZAPRINE
     Indication: Stiff person syndrome
     Dosage: 10 MILLIGRAM, TID
     Route: 065
  5. CYCLOBENZAPRINE [Suspect]
     Active Substance: CYCLOBENZAPRINE
     Indication: Paraneoplastic syndrome
  6. CISPLATIN [Suspect]
     Active Substance: CISPLATIN
     Indication: Lung neoplasm
     Dosage: UNK
     Route: 065
     Dates: start: 2017
  7. NIVOLUMAB [Concomitant]
     Active Substance: NIVOLUMAB
     Indication: Carcinoid tumour pulmonary
     Dosage: UNK, CYCLICAL (16 CYCLES)
     Route: 065
  8. NIVOLUMAB [Concomitant]
     Active Substance: NIVOLUMAB
     Indication: Metastatic carcinoid tumour
  9. VOROLANIB [Concomitant]
     Active Substance: VOROLANIB
     Indication: Carcinoid tumour pulmonary
     Dosage: UNK, CYCLICAL (16 CYCLES)
     Route: 065
  10. VOROLANIB [Concomitant]
     Active Substance: VOROLANIB
     Indication: Metastatic carcinoid tumour
  11. METHYLPREDNISOLONE [Concomitant]
     Active Substance: METHYLPREDNISOLONE
     Indication: Stiff person syndrome
     Dosage: 1 GRAM, QD
     Route: 042
  12. METHYLPREDNISOLONE [Concomitant]
     Active Substance: METHYLPREDNISOLONE
     Indication: Paraneoplastic syndrome
  13. PREDNISONE [Concomitant]
     Active Substance: PREDNISONE
     Indication: Stiff person syndrome
     Dosage: 10 MILLIGRAM, BID (2MG/KG)
     Route: 042
  14. PREDNISONE [Concomitant]
     Active Substance: PREDNISONE
     Indication: Paraneoplastic syndrome
  15. PEMBROLIZUMAB [Concomitant]
     Active Substance: PEMBROLIZUMAB
     Indication: Carcinoid tumour pulmonary
     Dosage: UNK
     Route: 065
  16. PEMBROLIZUMAB [Concomitant]
     Active Substance: PEMBROLIZUMAB
     Indication: Metastatic carcinoid tumour
  17. ALDESLEUKIN [Concomitant]
     Active Substance: ALDESLEUKIN
     Indication: Carcinoid tumour pulmonary
     Dosage: UNK
     Route: 065
  18. ALDESLEUKIN [Concomitant]
     Active Substance: ALDESLEUKIN
     Indication: Metastatic carcinoid tumour
  19. CAPECITABINE [Concomitant]
     Active Substance: CAPECITABINE
     Indication: Carcinoid tumour pulmonary
     Dosage: UNK
     Route: 065
  20. CAPECITABINE [Concomitant]
     Active Substance: CAPECITABINE
     Indication: Metastatic carcinoid tumour
  21. TEMOZOLOMIDE [Concomitant]
     Active Substance: TEMOZOLOMIDE
     Indication: Carcinoid tumour pulmonary
     Dosage: UNK
     Route: 065
  22. TEMOZOLOMIDE [Concomitant]
     Active Substance: TEMOZOLOMIDE
     Indication: Metastatic carcinoid tumour

REACTIONS (3)
  - Drug ineffective [Unknown]
  - Condition aggravated [Unknown]
  - Metastases to liver [Unknown]

NARRATIVE: CASE EVENT DATE: 20180101
